FAERS Safety Report 9465669 (Version 1)
Quarter: 2013Q3

REPORT INFORMATION
  Report Type: Spontaneous
  Country: US (occurrence: US)
  Receive Date: 20130820
  Receipt Date: 20130820
  Transmission Date: 20140515
  Serious: No
  Sender: FDA-Public Use
  Company Number: US-BAYER-2013-099976

PATIENT
  Age: 84 Year
  Sex: Female
  Weight: 68 kg

DRUGS (9)
  1. ALEVE TABLET [Suspect]
     Indication: ANALGESIC THERAPY
     Dosage: 1 DF, BID
     Route: 048
     Dates: start: 20130811
  2. TYLENOL [PARACETAMOL] [Concomitant]
  3. ATENOLOL [Concomitant]
  4. PANTOPRAZOLE [Concomitant]
  5. BAYER CHEWABLE LOW DOSE BABY ASPIRIN TABLET ORANGE [Concomitant]
     Indication: ISCHAEMIC HEART DISEASE PROPHYLAXIS
     Dosage: 1 DF, QD
     Route: 048
     Dates: start: 201303
  6. BAYER CHEWABLE LOW DOSE BABY ASPIRIN TABLET ORANGE [Concomitant]
     Indication: OESOPHAGITIS
  7. CALCIUM CITRATE [Concomitant]
  8. VALSARTAN [Concomitant]
  9. HYDROCHLOROTHIAZIDE [Concomitant]

REACTIONS (1)
  - Drug ineffective [None]
